FAERS Safety Report 10458892 (Version 1)
Quarter: 2014Q3

REPORT INFORMATION
  Report Type: Spontaneous
  Country: US (occurrence: None)
  Receive Date: 20140916
  Receipt Date: 20140916
  Transmission Date: 20150326
  Serious: No
  Sender: FDA-Public Use
  Company Number: None

PATIENT

DRUGS (1)
  1. ZOLOFT [Suspect]
     Active Substance: SERTRALINE HYDROCHLORIDE
     Dosage: QAM, BUT ACCIDENTLY HIT THE SCROLL ON MOUSE AND MOVED FREQUENCY TO Q9HRS.
     Route: 048

REACTIONS (4)
  - Nausea [None]
  - Drug prescribing error [None]
  - Accidental overdose [None]
  - Vomiting [None]
